FAERS Safety Report 5064821-7 (Version None)
Quarter: 2006Q3

REPORT INFORMATION
  Report Type: 
  Country: None (occurrence: None)
  Receive Date: 20060725
  Receipt Date: 20060710
  Transmission Date: 20061208
  Serious: Yes (Hospitalization, Other)
  Sender: FDA-Public Use
  Company Number: 2006S1004189

PATIENT
  Age: 58 Year
  Sex: Female
  Weight: 75.7507 kg

DRUGS (4)
  1. CLOZAPINE [Suspect]
     Indication: DELUSION
     Dosage: 100 MG; BID; ORAL
     Route: 048
     Dates: end: 20060428
  2. CLOZAPINE [Suspect]
     Indication: SCHIZOPHRENIA, PARANOID TYPE
     Dosage: 100 MG; BID; ORAL
     Route: 048
     Dates: end: 20060428
  3. LIPITOR [Suspect]
     Indication: HYPERLIPIDAEMIA
     Dosage: 20 MG; QD; PO
     Route: 048
     Dates: end: 20060428
  4. PLANTAGO OVATA [Concomitant]

REACTIONS (2)
  - HEPATIC FAILURE [None]
  - HEPATITIS [None]
